FAERS Safety Report 19963498 (Version 1)
Quarter: 2021Q4

REPORT INFORMATION
  Report Type: Spontaneous
  Country: US (occurrence: US)
  Receive Date: 20211017
  Receipt Date: 20211017
  Transmission Date: 20220303
  Serious: Yes (Other)
  Sender: FDA-Public Use
  Company Number: None

PATIENT
  Age: 42 Year
  Sex: Female
  Weight: 76.5 kg

DRUGS (6)
  1. NITROFURANTOIN MONOHYDRATE MACROCRYSTALS [Suspect]
     Active Substance: NITROFURANTOIN\NITROFURANTOIN MONOHYDRATE
     Indication: Urinary tract infection
     Dosage: ?          QUANTITY:14 CAPSULE(S);
     Route: 048
     Dates: start: 20211009, end: 20211014
  2. HUMIRA [Concomitant]
     Active Substance: ADALIMUMAB
  3. LEXAPRO [Concomitant]
     Active Substance: ESCITALOPRAM OXALATE
  4. ATIVAN [Concomitant]
     Active Substance: LORAZEPAM
  5. TRI-LO-MARZIA [Concomitant]
     Active Substance: ETHINYL ESTRADIOL\NORGESTIMATE
  6. B VITAMIN SUPPLEMENT [Concomitant]

REACTIONS (5)
  - Neuropathy peripheral [None]
  - Vertigo [None]
  - Vomiting [None]
  - Hallucination, auditory [None]
  - Hallucination, visual [None]

NARRATIVE: CASE EVENT DATE: 20211013
